FAERS Safety Report 25002271 (Version 1)
Quarter: 2025Q1

REPORT INFORMATION
  Report Type: Spontaneous
  Country: US (occurrence: US)
  Receive Date: 20250224
  Receipt Date: 20250224
  Transmission Date: 20250408
  Serious: No
  Sender: BOEHRINGER INGELHEIM
  Company Number: US-Komodo Health-a23aa000005yi1iAAA

PATIENT
  Age: 79 Year
  Sex: Male

DRUGS (3)
  1. JARDIANCE [Suspect]
     Active Substance: EMPAGLIFLOZIN
     Indication: Type 2 diabetes mellitus
     Dates: start: 202401
  2. ENALAPRIL [Suspect]
     Active Substance: ENALAPRIL
     Indication: Blood pressure abnormal
  3. metformin/ glyburide [Concomitant]
     Indication: Product used for unknown indication
     Dosage: 2.5/50000MG DAILY
     Dates: start: 2005

REACTIONS (1)
  - Fatigue [Not Recovered/Not Resolved]

NARRATIVE: CASE EVENT DATE: 20240101
